FAERS Safety Report 9321139 (Version 1)
Quarter: 2013Q2

REPORT INFORMATION
  Report Type: Spontaneous
  Country: IT (occurrence: None)
  Receive Date: 20130528
  Receipt Date: 20130528
  Transmission Date: 20140414
  Serious: Yes (Death, Other)
  Sender: FDA-Public Use
  Company Number: 2013P1006127

PATIENT
  Age: 26 Year
  Sex: Male

DRUGS (1)
  1. LIDOCAINE [Suspect]
     Route: 042

REACTIONS (6)
  - Pulmonary oedema [None]
  - Wrong drug administered [None]
  - Visceral congestion [None]
  - Toxicity to various agents [None]
  - Accidental overdose [None]
  - Drug abuse [None]
